FAERS Safety Report 4956954-8 (Version None)
Quarter: 2006Q1

REPORT INFORMATION
  Report Type: 
  Country: None (occurrence: None)
  Receive Date: 20060127
  Receipt Date: 20050516
  Transmission Date: 20060701
  Serious: Yes (Hospitalization)
  Sender: FDA-Public Use
  Company Number: 05-05-0851

PATIENT
  Age: 46 Year
  Sex: Male

DRUGS (4)
  1. CLOZAPINE [Suspect]
     Indication: SCHIZOPHRENIA
     Dosage: 400 MG, QD, ORAL
     Route: 048
     Dates: start: 20050501, end: 20050515
  2. VALPROATE SODIUM [Concomitant]
  3. LITHIUM CARBONATE [Concomitant]
  4. VENLAFAXINE HCL [Concomitant]

REACTIONS (5)
  - HEPATIC ENZYME INCREASED [None]
  - LEUKOCYTOSIS [None]
  - PLEURAL EFFUSION [None]
  - PYREXIA [None]
  - THROMBOCYTHAEMIA [None]
